FAERS Safety Report 19962894 (Version 14)
Quarter: 2022Q4

REPORT INFORMATION
  Report Type: Report from Study
  Country: US (occurrence: US)
  Receive Date: 20211018
  Receipt Date: 20221218
  Transmission Date: 20230113
  Serious: Yes (Other)
  Sender: FDA-Public Use
  Company Number: US-AUROBINDO-AUR-APL-2021-041549

PATIENT
  Sex: Male
  Weight: 108.7 kg

DRUGS (18)
  1. BELINOSTAT [Suspect]
     Active Substance: BELINOSTAT
     Indication: Chondrosarcoma
     Dosage: 4250 UNK
     Route: 065
  2. BELINOSTAT [Suspect]
     Active Substance: BELINOSTAT
     Dosage: 9040 UNK
     Route: 065
  3. BELINOSTAT [Suspect]
     Active Substance: BELINOSTAT
     Dosage: 2260 UNK
     Route: 065
  4. BELINOSTAT [Suspect]
     Active Substance: BELINOSTAT
     Dosage: 4560 MILLIGRAM
     Route: 042
     Dates: start: 20210913, end: 20210914
  5. BELINOSTAT [Suspect]
     Active Substance: BELINOSTAT
     Dosage: 11400 UNK
     Route: 065
     Dates: start: 20210913, end: 20210914
  6. BELINOSTAT [Suspect]
     Active Substance: BELINOSTAT
     Dosage: 11400 UNK
     Route: 065
     Dates: start: 20210914, end: 20210914
  7. BELINOSTAT [Suspect]
     Active Substance: BELINOSTAT
     Dosage: 11300 UNK
     Route: 065
     Dates: start: 20211011
  8. BELINOSTAT [Suspect]
     Active Substance: BELINOSTAT
     Dosage: 11300 UNK
     Route: 065
     Dates: start: 20211108
  9. BELINOSTAT [Suspect]
     Active Substance: BELINOSTAT
     Dosage: 4520 UNK
     Route: 065
     Dates: start: 20211108
  10. BELINOSTAT [Suspect]
     Active Substance: BELINOSTAT
     Dosage: 6780 UNK
     Route: 065
     Dates: start: 20211108
  11. BELINOSTAT [Suspect]
     Active Substance: BELINOSTAT
     Dosage: 9040 UNK
     Route: 065
     Dates: start: 20211206
  12. BELINOSTAT [Suspect]
     Active Substance: BELINOSTAT
     Dosage: 2260 UNK
     Route: 065
     Dates: start: 20211206
  13. BELINOSTAT [Suspect]
     Active Substance: BELINOSTAT
     Dosage: 6780 UNK
     Route: 065
     Dates: start: 20211206
  14. DECITABINE [Suspect]
     Active Substance: DECITABINE
     Indication: Product used for unknown indication
     Dosage: 675 UNK
     Route: 065
     Dates: start: 20210913, end: 20210917
  15. DECITABINE [Suspect]
     Active Substance: DECITABINE
     Dosage: 675 UNK
     Route: 065
     Dates: start: 20211011
  16. DECITABINE [Suspect]
     Active Substance: DECITABINE
     Dosage: 675 UNK
     Route: 065
     Dates: start: 20211108
  17. DECITABINE [Suspect]
     Active Substance: DECITABINE
     Dosage: 675 UNK
     Route: 065
     Dates: start: 20211206
  18. GUADECITABINE [Suspect]
     Active Substance: GUADECITABINE
     Indication: Product used for unknown indication
     Dosage: 100 MILLIGRAM
     Route: 065
     Dates: start: 20210913

REACTIONS (24)
  - Infusion site extravasation [Recovering/Resolving]
  - Activated partial thromboplastin time prolonged [Unknown]
  - Obesity [Unknown]
  - Atrial fibrillation [Unknown]
  - Diabetes mellitus [Unknown]
  - Hypertension [Unknown]
  - Nausea [Unknown]
  - Hot flush [Unknown]
  - Hyponatraemia [Unknown]
  - Hypocalcaemia [Unknown]
  - Infusion related reaction [Unknown]
  - Non-cardiac chest pain [Unknown]
  - Platelet count decreased [Unknown]
  - Sinus tachycardia [Unknown]
  - Tumour pain [Unknown]
  - White blood cell count decreased [Unknown]
  - Phlebitis [Unknown]
  - Pain [Unknown]
  - Hernia [Unknown]
  - Depression [Unknown]
  - Lymphocyte count decreased [Unknown]
  - Gastrooesophageal reflux disease [Unknown]
  - Blood thyroid stimulating hormone increased [Unknown]
  - Sinus bradycardia [Unknown]

NARRATIVE: CASE EVENT DATE: 20210914
